FAERS Safety Report 9780571 (Version 1)
Quarter: 2013Q4

REPORT INFORMATION
  Report Type: Spontaneous
  Country: FR (occurrence: FR)
  Receive Date: 20131224
  Receipt Date: 20131224
  Transmission Date: 20140711
  Serious: Yes (Other)
  Sender: FDA-Public Use
  Company Number: FR-ROCHE-1319103

PATIENT
  Age: 82 Year
  Sex: Female

DRUGS (2)
  1. HERCEPTIN [Suspect]
     Indication: BREAST CANCER METASTATIC
     Dosage: 6MG/KG
     Route: 042
     Dates: start: 20130315
  2. PACLITAXEL [Suspect]
     Indication: BREAST CANCER METASTATIC
     Dosage: 80 MG/M2
     Route: 042
     Dates: start: 20130617, end: 20131002

REACTIONS (4)
  - Oedema peripheral [Unknown]
  - Onycholysis [Unknown]
  - Skin ulcer [Unknown]
  - Neuropathy peripheral [Unknown]
